FAERS Safety Report 4288005-5 (Version None)
Quarter: 2004Q1

REPORT INFORMATION
  Report Type: 
  Country: None (occurrence: None)
  Receive Date: 20040209
  Receipt Date: 20031114
  Transmission Date: 20041129
  Serious: No
  Sender: FDA-Public Use
  Company Number: US-GLAXOSMITHKLINE-A0439842A

PATIENT
  Age: 73 Year
  Sex: Female

DRUGS (6)
  1. PAXIL [Suspect]
     Indication: INSOMNIA
     Dosage: 12.5MG PER DAY
     Route: 048
     Dates: start: 20030801
  2. ATENOLOL [Concomitant]
  3. SYNTHROID [Concomitant]
  4. MULTIVITAMIN [Concomitant]
  5. CALCIUM [Concomitant]
  6. AMBIEN [Concomitant]

REACTIONS (2)
  - DIARRHOEA [None]
  - FLATULENCE [None]
